FAERS Safety Report 22048102 (Version 1)
Quarter: 2023Q1

REPORT INFORMATION
  Report Type: Spontaneous
  Country: NL (occurrence: NL)
  Receive Date: 20230301
  Receipt Date: 20230301
  Transmission Date: 20230418
  Serious: Yes (Other)
  Sender: FDA-Public Use
  Company Number: None

PATIENT
  Sex: Male
  Weight: 73 kg

DRUGS (3)
  1. FLUTICASONE PROPIONATE [Suspect]
     Active Substance: FLUTICASONE PROPIONATE
     Indication: Nasal congestion
     Dosage: 200 MICROGRAM DAILY; 1X DAILY 2 SPRAYS IN EACH NOSTRIL, FLUTICASON-PROPIONAAT NEUSSPRAY 50UG/DO / BR
     Route: 045
     Dates: start: 20200615, end: 20220801
  2. FLUTICASONE PROPIONATE [Suspect]
     Active Substance: FLUTICASONE PROPIONATE
     Indication: Hypersensitivity
  3. FLUTICASONE PROPIONATE [Suspect]
     Active Substance: FLUTICASONE PROPIONATE
     Indication: Inflammation

REACTIONS (2)
  - Eye pain [Recovered/Resolved]
  - Cluster headache [Recovered/Resolved]
